FAERS Safety Report 4718833-0 (Version None)
Quarter: 2005Q3

REPORT INFORMATION
  Report Type: 
  Country: None (occurrence: None)
  Receive Date: 20050719
  Receipt Date: 20050708
  Transmission Date: 20060218
  Serious: Yes (Hospitalization)
  Sender: FDA-Public Use
  Company Number: KII-2005-0017501

PATIENT
  Age: 10 Month
  Sex: Female
  Weight: 12.7 kg

DRUGS (2)
  1. MORPHINE [Suspect]
     Dosage: SEE TEXT, ORAL
     Route: 048
  2. COCAINE (COCAINE) [Suspect]

REACTIONS (3)
  - ACCIDENTAL DRUG INTAKE BY CHILD [None]
  - ACCIDENTAL OVERDOSE [None]
  - CRYING [None]
